FAERS Safety Report 9089587 (Version 2)
Quarter: 2013Q1

REPORT INFORMATION
  Report Type: Report from Study
  Country: JP (occurrence: JP)
  Receive Date: 20130201
  Receipt Date: 20130219
  Transmission Date: 20140127
  Serious: Yes (Death)
  Sender: FDA-Public Use
  Company Number: JP-UCBSA-077332

PATIENT
  Age: 54 Year
  Sex: Male
  Weight: 32 kg

DRUGS (7)
  1. E KEPPRA [Suspect]
     Indication: COMPLEX PARTIAL SEIZURES
     Route: 048
     Dates: start: 20120424, end: 20121112
  2. E KEPPRA [Suspect]
     Indication: PARTIAL SEIZURES WITH SECONDARY GENERALISATION
     Route: 048
     Dates: start: 20120424, end: 20121112
  3. E KEPPRA [Suspect]
     Indication: COMPLEX PARTIAL SEIZURES
     Route: 048
     Dates: start: 20120208, end: 20120423
  4. E KEPPRA [Suspect]
     Indication: PARTIAL SEIZURES WITH SECONDARY GENERALISATION
     Route: 048
     Dates: start: 20120208, end: 20120423
  5. HYDANTOL [Concomitant]
     Indication: COMPLEX PARTIAL SEIZURES
     Dosage: DAILY DOSE: 175MG
     Route: 048
     Dates: end: 20121112
  6. HYDANTOL [Concomitant]
     Indication: PARTIAL SEIZURES WITH SECONDARY GENERALISATION
     Dosage: DAILY DOSE: 175MG
     Route: 048
     Dates: end: 20121112
  7. MYONAL [Concomitant]
     Dosage: DAILY DOSE: 150MG
     Route: 048
     Dates: end: 20120608

REACTIONS (1)
  - Respiratory failure [Fatal]
